FAERS Safety Report 18037952 (Version 1)
Quarter: 2020Q3

REPORT INFORMATION
  Report Type: Spontaneous
  Country: AU (occurrence: AU)
  Receive Date: 20200717
  Receipt Date: 20200717
  Transmission Date: 20201103
  Serious: Yes (Other)
  Sender: FDA-Public Use
  Company Number: AU-PFIZER INC-2020089229

PATIENT
  Age: 43 Year
  Sex: Male
  Weight: 107 kg

DRUGS (11)
  1. CHOLECALCIFEROL [Suspect]
     Active Substance: CHOLECALCIFEROL
     Dosage: 1000 IU, DAILY
     Route: 065
  2. PANTOPRAZOLE [Suspect]
     Active Substance: PANTOPRAZOLE
     Dosage: 40 MG, 2X/DAY
     Route: 048
  3. CLEARLAX [Suspect]
     Active Substance: POLYETHYLENE GLYCOL 3350
     Dosage: 1 DF, 2X/DAY
     Route: 065
  4. ATORVASTATIN/FENOFIBRATE [Suspect]
     Active Substance: ATORVASTATIN\FENOFIBRATE
     Indication: DYSLIPIDAEMIA
     Dosage: UNK (40 MG/145 MG)
  5. PALIPERIDONE. [Concomitant]
     Active Substance: PALIPERIDONE
     Dosage: 37.5 MG, 1M1 Q 2 WEEKLY
  6. CLOPINE [Suspect]
     Active Substance: CLOZAPINE
     Dosage: 25 MG, 1X/DAY
     Route: 048
     Dates: start: 20150311
  7. RISPERIDONE. [Suspect]
     Active Substance: RISPERIDONE
     Dosage: 37.5 MG, CYCLIC
     Route: 048
  8. CLOPINE [Suspect]
     Active Substance: CLOZAPINE
     Indication: SCHIZOPHRENIA
     Dosage: UNK
     Route: 048
     Dates: start: 2006
  9. CLOPINE [Suspect]
     Active Substance: CLOZAPINE
     Dosage: 350 MG, 1X/DAY
     Route: 048
  10. CLOPINE [Suspect]
     Active Substance: CLOZAPINE
     Dosage: 250 MG, 1X/DAY
     Route: 048
  11. CHOLECALCIFEROL [Suspect]
     Active Substance: CHOLECALCIFEROL
     Dosage: 25 UG, DAILY
     Route: 065

REACTIONS (17)
  - Congestive cardiomyopathy [Unknown]
  - Echocardiogram abnormal [Unknown]
  - High density lipoprotein decreased [Unknown]
  - Impaired fasting glucose [Unknown]
  - Vomiting [Unknown]
  - Withdrawal syndrome [Unknown]
  - Dizziness postural [Unknown]
  - Left ventricular hypertrophy [Unknown]
  - Orthostatic hypotension [Unknown]
  - Blood cholesterol increased [Unknown]
  - Sedation complication [Unknown]
  - Neutrophilia [Unknown]
  - Hypertriglyceridaemia [Unknown]
  - Tachycardia [Unknown]
  - Nausea [Unknown]
  - Constipation [Unknown]
  - Systolic dysfunction [Unknown]

NARRATIVE: CASE EVENT DATE: 201812
